FAERS Safety Report 20415915 (Version 1)
Quarter: 2022Q1

REPORT INFORMATION
  Report Type: Spontaneous
  Country: CA (occurrence: CA)
  Receive Date: 20220202
  Receipt Date: 20220202
  Transmission Date: 20220424
  Serious: Yes (Other)
  Sender: FDA-Public Use
  Company Number: CA-TEVA-2022-CA-2004207

PATIENT
  Age: 59 Year
  Sex: Female

DRUGS (3)
  1. METHOTREXATE [Suspect]
     Active Substance: METHOTREXATE
     Indication: Product used for unknown indication
     Route: 065
  2. DAPSONE [Suspect]
     Active Substance: DAPSONE
     Indication: Product used for unknown indication
     Route: 065
  3. QUINACRINE [Suspect]
     Active Substance: QUINACRINE
     Indication: Product used for unknown indication
     Route: 065

REACTIONS (4)
  - Cutaneous lupus erythematosus [Unknown]
  - Osteonecrosis [Unknown]
  - Drug ineffective [Unknown]
  - Drug intolerance [Unknown]
